FAERS Safety Report 16672538 (Version 2)
Quarter: 2021Q4

REPORT INFORMATION
  Report Type: Report from Study
  Country: JP (occurrence: JP)
  Receive Date: 20190806
  Receipt Date: 20211019
  Transmission Date: 20220304
  Serious: Yes (Death, Life-Threatening, Other)
  Sender: FDA-Public Use
  Company Number: JP-RECORDATI RARE DISEASES INC.-JP-R13005-19-00210

PATIENT
  Age: 7 Day
  Sex: Female
  Weight: .52 kg

DRUGS (15)
  1. NEOPROFEN [Suspect]
     Active Substance: IBUPROFEN LYSINE
     Indication: Patent ductus arteriosus
     Dosage: 5 MILLIGRAM, QD
     Route: 042
     Dates: start: 20190430, end: 20190430
  2. INOVAN [DOPAMINE HYDROCHLORIDE] [Concomitant]
     Indication: Patent ductus arteriosus
     Dosage: UNK
     Route: 042
     Dates: start: 20190426, end: 20190613
  3. SOLU-CORTEF [Concomitant]
     Active Substance: HYDROCORTISONE SODIUM SUCCINATE
     Indication: Circulatory collapse
     Dosage: UNK
     Route: 042
     Dates: start: 20190426, end: 20190611
  4. GASTER [Concomitant]
     Active Substance: FAMOTIDINE
     Indication: Gastrointestinal haemorrhage
     Dosage: UNK
     Route: 042
     Dates: start: 20190428, end: 20190501
  5. FOSFLUCONAZOLE [Concomitant]
     Active Substance: FOSFLUCONAZOLE
     Indication: Fungal infection
     Dosage: UNK
     Route: 042
     Dates: start: 20190428, end: 20190610
  6. MENATETRENONE [Concomitant]
     Active Substance: MENATETRENONE
     Indication: Vitamin K deficiency
     Dosage: UNK
     Route: 042
     Dates: start: 20190425, end: 20190611
  7. CAFFEINE [Concomitant]
     Active Substance: CAFFEINE
     Indication: Infantile apnoea
     Dosage: UNK
     Route: 042
     Dates: start: 20190430, end: 20190501
  8. CAFFEINE [Concomitant]
     Active Substance: CAFFEINE
     Indication: Prophylaxis
  9. FLUTICASONE PROPIONATE [Concomitant]
     Active Substance: FLUTICASONE PROPIONATE
     Indication: Bronchopulmonary dysplasia
     Dosage: UNK
     Dates: start: 20190430, end: 20190501
  10. FLUTICASONE PROPIONATE [Concomitant]
     Active Substance: FLUTICASONE PROPIONATE
     Indication: Prophylaxis
  11. PLEAMIN P [Concomitant]
     Indication: Nutritional supplementation
     Dosage: UNK
     Route: 042
     Dates: start: 20190425, end: 20190613
  12. SODIUM PHOSPHATE [Concomitant]
     Active Substance: SODIUM PHOSPHATE
     Indication: Electrolyte imbalance
     Dosage: UNK
     Route: 042
     Dates: start: 20190426, end: 20190613
  13. VITAJECT [VITAMINS NOS] [Concomitant]
     Indication: Vitamin supplementation
     Dosage: UNK
     Route: 042
     Dates: start: 20190425, end: 20190613
  14. CUPRIC SULFATE\FERRIC CHLORIDE\MANGANESE CHLORIDE\POTASSIUM IODIDE\ZIN [Concomitant]
     Active Substance: CUPRIC SULFATE\FERRIC CHLORIDE\MANGANESE CHLORIDE\POTASSIUM IODIDE\ZINC SULFATE
     Indication: Vitamin supplementation
     Dosage: UNK
     Route: 042
     Dates: start: 20190425, end: 20190613
  15. CALCIUM GLUCONATE [Concomitant]
     Active Substance: CALCIUM GLUCONATE
     Indication: Electrolyte imbalance
     Dosage: UNK
     Route: 042
     Dates: start: 20190425, end: 20190515

REACTIONS (5)
  - Pulmonary haemorrhage [Recovering/Resolving]
  - Multiple organ dysfunction syndrome [Fatal]
  - Disseminated intravascular coagulation [Unknown]
  - Bacteraemia [Recovered/Resolved]
  - Intraventricular haemorrhage [Unknown]

NARRATIVE: CASE EVENT DATE: 20190501
